FAERS Safety Report 23630135 (Version 2)
Quarter: 2024Q3

REPORT INFORMATION
  Report Type: Spontaneous
  Country: US (occurrence: US)
  Receive Date: 20240314
  Receipt Date: 20240905
  Transmission Date: 20241016
  Serious: No
  Sender: SPRINGWORKS THERAPEUTIC
  Company Number: US-SPRINGWORKS THERAPEUTICS-SW-001152

PATIENT

DRUGS (1)
  1. OGSIVEO [Suspect]
     Active Substance: NIROGACESTAT\NIROGACESTAT HYDROBROMIDE
     Indication: Desmoid tumour
     Dosage: UNK
     Dates: start: 202307

REACTIONS (7)
  - Abdominal discomfort [Unknown]
  - Somnolence [Recovering/Resolving]
  - Libido decreased [Unknown]
  - Asthenia [Not Recovered/Not Resolved]
  - Nasal dryness [Unknown]
  - Fatigue [Not Recovered/Not Resolved]
  - Intentional product use issue [Unknown]
